FAERS Safety Report 18628526 (Version 2)
Quarter: 2020Q4

REPORT INFORMATION
  Report Type: Spontaneous
  Country: FR (occurrence: FR)
  Receive Date: 20201217
  Receipt Date: 20201222
  Transmission Date: 20210114
  Serious: Yes (Death, Hospitalization)
  Sender: FDA-Public Use
  Company Number: FR-TEVA-2020-FR-1858360

PATIENT
  Age: 74 Year
  Sex: Female
  Weight: 40 kg

DRUGS (1)
  1. CARBOPLATINE [Suspect]
     Active Substance: CARBOPLATIN
     Indication: OVARIAN CANCER
     Dosage: UNIT DOSE : 720 MG
     Route: 042
     Dates: start: 20201021, end: 20201021

REACTIONS (4)
  - Escherichia infection [Fatal]
  - Bone marrow failure [Fatal]
  - Incorrect dose administered [Fatal]
  - Product prescribing error [Fatal]

NARRATIVE: CASE EVENT DATE: 20201021
